FAERS Safety Report 14140733 (Version 1)
Quarter: 2017Q4

REPORT INFORMATION
  Report Type: Spontaneous
  Country: US (occurrence: US)
  Receive Date: 20171030
  Receipt Date: 20171030
  Transmission Date: 20180321
  Serious: Yes (Hospitalization, Other)
  Sender: FDA-Public Use
  Company Number: US-ROCHE-2010805

PATIENT
  Age: 66 Year
  Sex: Female

DRUGS (2)
  1. DEXAMETHASONE. [Concomitant]
     Active Substance: DEXAMETHASONE
     Route: 048
  2. ALECENSA [Suspect]
     Active Substance: ALECTINIB HYDROCHLORIDE
     Indication: LUNG CANCER METASTATIC
     Route: 048
     Dates: start: 201703

REACTIONS (6)
  - Pneumonia [Recovered/Resolved]
  - Swelling face [Not Recovered/Not Resolved]
  - Oedema peripheral [Recovering/Resolving]
  - Fatigue [Not Recovered/Not Resolved]
  - Spinal compression fracture [Not Recovered/Not Resolved]
  - Malaise [Not Recovered/Not Resolved]

NARRATIVE: CASE EVENT DATE: 20170712
